FAERS Safety Report 20070460 (Version 6)
Quarter: 2022Q3

REPORT INFORMATION
  Report Type: Report from Study
  Country: CL (occurrence: CL)
  Receive Date: 20211115
  Receipt Date: 20220823
  Transmission Date: 20221026
  Serious: Yes (Other)
  Sender: FDA-Public Use
  Company Number: CL-NOVARTISPH-NVSC2021CL240282

PATIENT
  Sex: Female

DRUGS (4)
  1. PIQRAY [Suspect]
     Active Substance: ALPELISIB
     Indication: Breast cancer
     Dosage: 300 MG, QD
     Route: 048
     Dates: start: 20211009
  2. PIQRAY [Suspect]
     Active Substance: ALPELISIB
     Dosage: UNK
     Route: 065
     Dates: start: 20211106
  3. KISQALI [Suspect]
     Active Substance: RIBOCICLIB
     Indication: Breast cancer
     Dosage: UNK
     Route: 065
     Dates: start: 201909
  4. FULVESTRANT [Suspect]
     Active Substance: FULVESTRANT
     Indication: Product used for unknown indication
     Dosage: UNK
     Route: 065

REACTIONS (13)
  - Diabetes mellitus [Unknown]
  - Blood glucose increased [Unknown]
  - Limb discomfort [Unknown]
  - Malaise [Unknown]
  - Oral discomfort [Unknown]
  - Illness [Unknown]
  - Joint swelling [Unknown]
  - Dysphonia [Unknown]
  - Sleep disorder [Unknown]
  - Dizziness [Unknown]
  - Cough [Unknown]
  - Nasopharyngitis [Unknown]
  - Peripheral swelling [Unknown]
